FAERS Safety Report 13854239 (Version 4)
Quarter: 2017Q3

REPORT INFORMATION
  Report Type: Spontaneous
  Country: JP (occurrence: JP)
  Receive Date: 20170810
  Receipt Date: 20170830
  Transmission Date: 20171127
  Serious: Yes (Hospitalization)
  Sender: FDA-Public Use
  Company Number: JP-GLAXOSMITHKLINE-JP2017JPN122184

PATIENT
  Age: 48 Year
  Sex: Male
  Weight: 68 kg

DRUGS (8)
  1. REQUIP [Suspect]
     Active Substance: ROPINIROLE HYDROCHLORIDE
     Dosage: 4 MG, QD
     Route: 048
     Dates: start: 20170714
  2. NEODOPASOL [Suspect]
     Active Substance: BENSERAZIDE HYDROCHLORIDE\LEVODOPA
     Indication: PARKINSON^S DISEASE
     Dosage: 300 MG, 1D
     Route: 048
     Dates: start: 20170218, end: 20170802
  3. BELSOMRA [Concomitant]
     Active Substance: SUVOREXANT
     Indication: INSOMNIA
     Dosage: 20 MG, 1D
     Dates: start: 20170802, end: 20170802
  4. FP OD [Suspect]
     Active Substance: SELEGILINE HYDROCHLORIDE
     Indication: PARKINSON^S DISEASE
     Dosage: 10 MG, 1D
     Route: 048
     Dates: start: 20170520, end: 20170802
  5. REQUIP [Suspect]
     Active Substance: ROPINIROLE HYDROCHLORIDE
     Indication: PARKINSON^S DISEASE
     Dosage: UNK UNK, QD
     Route: 048
     Dates: start: 20160806, end: 20170208
  6. REQUIP [Suspect]
     Active Substance: ROPINIROLE HYDROCHLORIDE
     Dosage: 2 MG, QD
     Route: 048
     Dates: start: 20170707
  7. REQUIP [Suspect]
     Active Substance: ROPINIROLE HYDROCHLORIDE
     Dosage: 8 MG, QD
     Route: 048
     Dates: start: 20170721, end: 20170729
  8. DOPS (DROXIDOPA) [Suspect]
     Active Substance: DROXIDOPA
     Indication: PARKINSON^S DISEASE
     Dosage: 600 MG, 1D
     Route: 048
     Dates: start: 20170606, end: 20170802

REACTIONS (5)
  - Refusal of treatment by patient [Unknown]
  - Communication disorder [Recovered/Resolved]
  - Aggression [Unknown]
  - Delusion [Recovering/Resolving]
  - Dehydration [Unknown]

NARRATIVE: CASE EVENT DATE: 20170730
